FAERS Safety Report 10480306 (Version 1)
Quarter: 2014Q3

REPORT INFORMATION
  Report Type: Spontaneous
  Country: BR (occurrence: BR)
  Receive Date: 20140929
  Receipt Date: 20140929
  Transmission Date: 20150326
  Serious: Yes (Hospitalization, Other)
  Sender: FDA-Public Use
  Company Number: BR-ROCHE-1465775

PATIENT
  Age: 4 Year
  Sex: Female

DRUGS (6)
  1. AZITHROMYCIN [Suspect]
     Active Substance: AZITHROMYCIN ANHYDROUS
     Indication: CYSTIC FIBROSIS
     Dosage: CONTINUOUS USE FOR 12 MONTHS
     Route: 065
     Dates: start: 2007
  2. CEFOXITIN [Concomitant]
     Active Substance: CEFOXITIN\CEFOXITIN SODIUM
  3. PANCREATIC ENZYMES [Concomitant]
     Active Substance: UNSPECIFIED INGREDIENT
     Indication: CYSTIC FIBROSIS
  4. DORNASE ALFA [Suspect]
     Active Substance: DORNASE ALFA
     Indication: CYSTIC FIBROSIS
     Route: 065
     Dates: start: 2007
  5. IMIPENEM [Suspect]
     Active Substance: IMIPENEM
     Indication: MYCOBACTERIUM TEST POSITIVE
     Route: 065
  6. COLOMYCIN (COLISTIN) [Suspect]
     Active Substance: COLISTIN
     Indication: CYSTIC FIBROSIS
     Dosage: DAILY
     Route: 065
     Dates: start: 2007

REACTIONS (19)
  - Drug hypersensitivity [Unknown]
  - Mycobacterium test positive [Unknown]
  - Lung disorder [Recovering/Resolving]
  - Hyperglycaemia [Unknown]
  - Mycobacterium test positive [Not Recovered/Not Resolved]
  - Condition aggravated [None]
  - Aspergillus test positive [Not Recovered/Not Resolved]
  - Pancreatic insufficiency [Unknown]
  - Staphylococcus test positive [None]
  - Cystic fibrosis [Recovering/Resolving]
  - Gastric disorder [Unknown]
  - Respiratory tract oedema [Unknown]
  - Deafness [Recovering/Resolving]
  - Burkholderia cepacia complex infection [Unknown]
  - Activities of daily living impaired [Recovering/Resolving]
  - Hypoacusis [Recovering/Resolving]
  - Pyrexia [Not Recovered/Not Resolved]
  - Pseudomonas test positive [None]
  - Lung transplant [None]

NARRATIVE: CASE EVENT DATE: 201004
